FAERS Safety Report 6956863-9 (Version None)
Quarter: 2010Q3

REPORT INFORMATION
  Report Type: 
  Country: None (occurrence: None)
  Receive Date: 20100830
  Receipt Date: 20100824
  Transmission Date: 20110219
  Serious: Yes (Death)
  Sender: FDA-Public Use
  Company Number: NL-MERCK-1008NLD00022

PATIENT
  Age: 69 Year
  Sex: Female
  Weight: 49 kg

DRUGS (10)
  1. EMEND [Suspect]
     Indication: CHEMOTHERAPY
     Route: 048
     Dates: start: 20100713
  2. EMEND [Suspect]
     Route: 048
     Dates: start: 20100713
  3. MEBEVERINE PAMOATE [Concomitant]
     Route: 048
     Dates: start: 20060101
  4. DEXAMETHASONE [Concomitant]
     Route: 048
     Dates: start: 20100714, end: 20100717
  5. PANTOPRAZOLE [Concomitant]
     Route: 048
     Dates: start: 20060101
  6. IFOSFAMIDE [Concomitant]
     Route: 048
     Dates: start: 20100501
  7. MESNA [Concomitant]
     Route: 051
     Dates: start: 20100101
  8. MESNA [Concomitant]
     Route: 051
     Dates: start: 20100101
  9. MESNA [Concomitant]
     Route: 051
     Dates: start: 20100101
  10. GRANISETRON [Concomitant]
     Route: 048
     Dates: start: 20100501

REACTIONS (3)
  - HEPATITIS [None]
  - METABOLIC ACIDOSIS [None]
  - SENSORY DISTURBANCE [None]
